FAERS Safety Report 15097410 (Version 1)
Quarter: 2018Q3

REPORT INFORMATION
  Report Type: Spontaneous
  Country: AU (occurrence: AU)
  Receive Date: 20180702
  Receipt Date: 20180702
  Transmission Date: 20181010
  Serious: Yes (Hospitalization)
  Sender: FDA-Public Use
  Company Number: AU-DSJP-DSJ-2018-125677AA

PATIENT

DRUGS (2)
  1. OLMESARTAN MEDOXOMIL. [Suspect]
     Active Substance: OLMESARTAN MEDOXOMIL
     Indication: PRODUCT USED FOR UNKNOWN INDICATION
     Dosage: UNK
     Route: 065
     Dates: end: 2009
  2. OLMESARTAN MEDOXOMIL; HYDROCHLOROTHIAZIDE [Suspect]
     Active Substance: HYDROCHLOROTHIAZIDE\OLMESARTAN MEDOXOMIL
     Indication: PRODUCT USED FOR UNKNOWN INDICATION
     Dosage: UNK, FOR ABOUT 2.5 MONTHS
     Route: 065
     Dates: start: 2009

REACTIONS (7)
  - Weight decreased [Unknown]
  - Abdominal pain upper [Unknown]
  - Pulmonary function test decreased [Unknown]
  - Vomiting [Unknown]
  - Fibrosis [Unknown]
  - Diarrhoea [Unknown]
  - Sarcoidosis [Unknown]
